FAERS Safety Report 7943682-X (Version None)
Quarter: 2011Q4

REPORT INFORMATION
  Report Type: 
  Country: None (occurrence: None)
  Receive Date: 20111128
  Receipt Date: 20111114
  Transmission Date: 20120403
  Serious: Yes (Hospitalization, Other)
  Sender: FDA-Public Use
  Company Number: JP-MYLANLABS-2011S1023562

PATIENT
  Age: 76 Year
  Sex: Male

DRUGS (2)
  1. TAXOL [Suspect]
     Indication: BILE DUCT CANCER
     Route: 041
     Dates: start: 20110725, end: 20111017
  2. CARBOPLATIN [Suspect]
     Indication: BILE DUCT CANCER
     Route: 041
     Dates: start: 20110725, end: 20111017

REACTIONS (4)
  - FEELING ABNORMAL [None]
  - BLOOD PRESSURE DECREASED [None]
  - RASH GENERALISED [None]
  - PRURITUS [None]
